FAERS Safety Report 20912657 (Version 1)
Quarter: 2022Q2

REPORT INFORMATION
  Report Type: Spontaneous
  Country: US (occurrence: US)
  Receive Date: 20220603
  Receipt Date: 20220603
  Transmission Date: 20220721
  Serious: Yes (Death)
  Sender: FDA-Public Use
  Company Number: US-009507513-2206USA000604

PATIENT
  Sex: Male

DRUGS (2)
  1. VERQUVO [Suspect]
     Active Substance: VERICIGUAT
     Indication: Left ventricular failure
     Dosage: 2.5 MILLIGRAM
     Route: 048
  2. VERQUVO [Suspect]
     Active Substance: VERICIGUAT
     Indication: Cardiac failure

REACTIONS (1)
  - Cardiac disorder [Fatal]
